FAERS Safety Report 19634939 (Version 1)
Quarter: 2021Q3

REPORT INFORMATION
  Report Type: Other
  Country: US (occurrence: US)
  Receive Date: 20210730
  Receipt Date: 20210730
  Transmission Date: 20211014
  Serious: Yes (Other)
  Sender: FDA-Public Use
  Company Number: US-ROCHE-2877289

PATIENT
  Sex: Female

DRUGS (2)
  1. OCREVUS [Suspect]
     Active Substance: OCRELIZUMAB
     Indication: MULTIPLE SCLEROSIS
     Dosage: DATE OF TREATMENT: 15/OCT/2019, 29/OCT/2019, 15/APR/2020, 05/OCT/2020, 05/APR/2021,
     Route: 065
     Dates: start: 201908, end: 20210722
  2. OCREVUS [Suspect]
     Active Substance: OCRELIZUMAB
     Dosage: INFUSE 600MG INTRAVENOUSLY EVERY 24 WEEK
     Route: 042

REACTIONS (1)
  - Breast cancer [Unknown]
